FAERS Safety Report 9710699 (Version 1)
Quarter: 2013Q4

REPORT INFORMATION
  Report Type: Spontaneous
  Country: US (occurrence: None)
  Receive Date: 20131125
  Receipt Date: 20131125
  Transmission Date: 20140711
  Serious: Yes (Other)
  Sender: FDA-Public Use
  Company Number: None

PATIENT
  Age: 73 None
  Sex: Female

DRUGS (10)
  1. ENBREL (ETANERCEPT) [Suspect]
     Indication: RHEUMATOID ARTHRITIS
     Dosage: 50 MG/ML 1 SHORT WEEKLY SURECLICK, APPROX FOR 3-4 YRS. 3 WKS AGO
  2. METHOTREXATE [Concomitant]
  3. PLAQUENIL [Concomitant]
  4. SYNTHROID [Concomitant]
  5. FOLIC ACID [Concomitant]
  6. OMEPRAZOLE [Concomitant]
  7. GABAPENTIN [Concomitant]
  8. VITAMIN D3 [Concomitant]
  9. ASA [Concomitant]
  10. FLAX EED OIL [Concomitant]

REACTIONS (1)
  - Colon cancer [None]
